FAERS Safety Report 8507233-3 (Version None)
Quarter: 2012Q3

REPORT INFORMATION
  Report Type: 
  Country: None (occurrence: None)
  Receive Date: 20120712
  Receipt Date: 20120705
  Transmission Date: 20120928
  Serious: Yes (Death)
  Sender: FDA-Public Use
  Company Number: CA-SANOFI-AVENTIS-2012SA048219

PATIENT
  Age: 68 Year
  Sex: Female

DRUGS (6)
  1. TAXOTERE [Suspect]
     Dosage: FORM: SOLUTION INTRAVENOUS
     Route: 042
  2. GANCICLOVIR [Concomitant]
  3. SEPTRA [Concomitant]
  4. AVELOX [Concomitant]
  5. CANCIDAS [Concomitant]
  6. PIPERACILLIN AND TAZOBACTAM [Concomitant]

REACTIONS (4)
  - MULTI-ORGAN FAILURE [None]
  - BLOOD ALKALINE PHOSPHATASE INCREASED [None]
  - BLOOD BILIRUBIN INCREASED [None]
  - PNEUMONITIS [None]
